FAERS Safety Report 11795344 (Version 1)
Quarter: 2015Q4

REPORT INFORMATION
  Report Type: Spontaneous
  Country: FR (occurrence: FR)
  Receive Date: 20151202
  Receipt Date: 20151202
  Transmission Date: 20160305
  Serious: Yes (Hospitalization)
  Sender: FDA-Public Use
  Company Number: FR-PFIZER INC-2015410781

PATIENT
  Age: 74 Year
  Sex: Female

DRUGS (4)
  1. TAHOR [Suspect]
     Active Substance: ATORVASTATIN CALCIUM
     Indication: HYPERCHOLESTEROLAEMIA
     Dosage: 10 MG, 1X/DAY
     Route: 048
     Dates: start: 200702, end: 201411
  2. OMEPRAZOLE. [Suspect]
     Active Substance: OMEPRAZOLE
     Dosage: 20 MG, DAILY
     Route: 048
     Dates: end: 201501
  3. GAVISCON /00237601/ [Concomitant]
     Active Substance: ALUMINUM HYDROXIDE\MAGNESIUM CARBONATE
     Dosage: 1 DF, 1X/DAY
  4. UVEDOSE [Concomitant]
     Active Substance: CHOLECALCIFEROL
     Dosage: 100000 IU, EVERY 3 MONTHS

REACTIONS (1)
  - Pulmonary fibrosis [Not Recovered/Not Resolved]

NARRATIVE: CASE EVENT DATE: 201411
